FAERS Safety Report 4395631-1 (Version None)
Quarter: 2004Q3

REPORT INFORMATION
  Report Type: 
  Country: None (occurrence: None)
  Receive Date: 20040709
  Receipt Date: 20040701
  Transmission Date: 20050211
  Serious: Yes (Death)
  Sender: FDA-Public Use
  Company Number: KII-2000-0001455

PATIENT
  Age: 31 Year
  Sex: Male

DRUGS (2)
  1. OXYCONTIN [Suspect]
     Indication: CANCER PAIN
  2. MS CONTIN [Suspect]
     Dosage: ORAL
     Route: 048

REACTIONS (3)
  - BONE MARROW DISORDER [None]
  - MALIGNANT NEOPLASM PROGRESSION [None]
  - RECTAL CANCER [None]
